FAERS Safety Report 9057589 (Version 1)
Quarter: 2013Q1

REPORT INFORMATION
  Report Type: Spontaneous
  Country: US (occurrence: US)
  Receive Date: 20130204
  Receipt Date: 20130204
  Transmission Date: 20140127
  Serious: No
  Sender: FDA-Public Use
  Company Number: US-PFIZER INC-2013039410

PATIENT
  Age: 24 Year
  Sex: Female

DRUGS (1)
  1. ZITHROMAX [Suspect]
     Indication: INFECTION
     Dosage: 600 MG, 1X/DAY
     Route: 048
     Dates: start: 20130129

REACTIONS (1)
  - Vomiting [Unknown]
